FAERS Safety Report 20556354 (Version 3)
Quarter: 2023Q2

REPORT INFORMATION
  Report Type: Other
  Country: IN (occurrence: None)
  Receive Date: 20220305
  Receipt Date: 20230417
  Transmission Date: 20230722
  Serious: Yes (Other)
  Sender: FDA-Public Use
  Company Number: IN-ROCHE-3040421

PATIENT
  Age: 69 Year
  Sex: Female

DRUGS (2)
  1. PERJETA [Suspect]
     Active Substance: PERTUZUMAB
     Indication: Breast cancer
     Route: 042
     Dates: start: 20211221
  2. PERJETA [Suspect]
     Active Substance: PERTUZUMAB
     Indication: Breast cancer metastatic

REACTIONS (5)
  - COVID-19 [Recovered/Resolved]
  - Infection [Unknown]
  - Gastroenteritis [Unknown]
  - Asthenia [Unknown]
  - Off label use [Unknown]
